FAERS Safety Report 23384605 (Version 2)
Quarter: 2024Q1

REPORT INFORMATION
  Report Type: Report from Study
  Country: CN (occurrence: CN)
  Receive Date: 20240109
  Receipt Date: 20240117
  Transmission Date: 20240410
  Serious: No
  Sender: FDA-Public Use
  Company Number: CN-PFIZER INC-PV202400002897

PATIENT
  Age: 70 Year
  Sex: Female

DRUGS (13)
  1. NIRMATRELVIR\RITONAVIR [Suspect]
     Active Substance: NIRMATRELVIR\RITONAVIR
     Indication: COVID-19
     Dosage: [NIRMATRELVIR 300MG]/[RITONAVIR 100MG], 2X/DAY (Q12H
     Route: 048
     Dates: start: 20220502, end: 20220512
  2. ACETYLCYSTEINE [Concomitant]
     Active Substance: ACETYLCYSTEINE
     Indication: Bronchitis chronic
     Dosage: UNK
     Route: 048
     Dates: start: 20220503, end: 20220513
  3. HEPARIN SODIUM [Concomitant]
     Active Substance: HEPARIN SODIUM
     Indication: Anticoagulant therapy
     Dosage: UNK
     Route: 058
     Dates: start: 20220503, end: 20220503
  4. POTASSIUM CHLORIDE [Concomitant]
     Active Substance: POTASSIUM CHLORIDE
     Indication: Blood potassium decreased
     Dosage: SUSTAINED-RELEASE TABLETS
     Route: 048
     Dates: start: 20220503, end: 20220505
  5. POTASSIUM CHLORIDE [Concomitant]
     Active Substance: POTASSIUM CHLORIDE
     Dosage: SUSTAINED-RELEASE TABLETS
     Route: 048
     Dates: start: 20220505, end: 20220513
  6. RIVAROXABAN [Concomitant]
     Active Substance: RIVAROXABAN
     Indication: Anticoagulant therapy
     Dosage: UNK
     Route: 048
     Dates: start: 20220505, end: 20220518
  7. XUAN FEI ZHI SOU [Concomitant]
     Indication: Cough
     Dosage: UNK
     Route: 048
     Dates: start: 20220503, end: 20220503
  8. POTASSIUM CHLORIDE [Concomitant]
     Active Substance: POTASSIUM CHLORIDE
     Indication: Mineral supplementation
     Dosage: UNK
     Route: 042
     Dates: start: 20220503, end: 20220504
  9. HERBALS\MENTHOL [Concomitant]
     Active Substance: HERBALS\MENTHOL
     Indication: COVID-19 treatment
     Dosage: UNK
     Route: 048
     Dates: start: 20220513, end: 20220513
  10. SODIUM CHLORIDE [Concomitant]
     Active Substance: SODIUM CHLORIDE
     Indication: Hyponatraemia
     Dosage: UNK
     Route: 048
     Dates: start: 20220506, end: 20220506
  11. SODIUM CHLORIDE [Concomitant]
     Active Substance: SODIUM CHLORIDE
     Dosage: UNK
     Route: 048
     Dates: start: 20220507, end: 20220507
  12. THYMALFASIN [Concomitant]
     Active Substance: THYMALFASIN
     Indication: COVID-19 treatment
     Dosage: UNK
     Route: 058
     Dates: start: 20220507, end: 20220507
  13. THYMALFASIN [Concomitant]
     Active Substance: THYMALFASIN
     Dosage: UNK
     Route: 058
     Dates: start: 20220509, end: 20220509

REACTIONS (1)
  - Overdose [Unknown]
